FAERS Safety Report 7796426-9 (Version None)
Quarter: 2011Q4

REPORT INFORMATION
  Report Type: 
  Country: None (occurrence: None)
  Receive Date: 20111005
  Receipt Date: 20110927
  Transmission Date: 20120403
  Serious: No
  Sender: FDA-Public Use
  Company Number: US-BIOGENIDEC-2011BI037119

PATIENT
  Sex: Male

DRUGS (2)
  1. TYSABRI [Suspect]
     Indication: MULTIPLE SCLEROSIS
     Route: 042
     Dates: start: 20080930
  2. CLARITIN [Concomitant]

REACTIONS (4)
  - FALL [None]
  - NAUSEA [None]
  - HEAD INJURY [None]
  - ABDOMINAL PAIN UPPER [None]
